FAERS Safety Report 6814833-5 (Version None)
Quarter: 2010Q3

REPORT INFORMATION
  Report Type: 
  Country: None (occurrence: None)
  Receive Date: 20100702
  Receipt Date: 20100624
  Transmission Date: 20110219
  Serious: Yes (Hospitalization)
  Sender: FDA-Public Use
  Company Number: A0868026A

PATIENT
  Age: 55 Year
  Sex: Female

DRUGS (1)
  1. AVANDAMET [Suspect]
     Dates: start: 20050101, end: 20050101

REACTIONS (3)
  - HEART RATE INCREASED [None]
  - HEART RATE IRREGULAR [None]
  - RENAL FAILURE [None]
